FAERS Safety Report 13476736 (Version 1)
Quarter: 2017Q2

REPORT INFORMATION
  Report Type: Spontaneous
  Country: BR (occurrence: BR)
  Receive Date: 20170425
  Receipt Date: 20170425
  Transmission Date: 20170830
  Serious: Yes (Other)
  Sender: FDA-Public Use
  Company Number: BR-PFIZER INC-2017130011

PATIENT
  Age: 38 Year
  Sex: Female

DRUGS (2)
  1. CABERGOLINE. [Suspect]
     Active Substance: CABERGOLINE
     Indication: PROLACTIN-PRODUCING PITUITARY TUMOUR
     Dosage: UNK
  2. DOSTINEX [Suspect]
     Active Substance: CABERGOLINE
     Indication: PROLACTIN-PRODUCING PITUITARY TUMOUR
     Dosage: 0.5 MG, EVERY DAY
     Route: 048
     Dates: start: 2012

REACTIONS (5)
  - Optic nerve compression [Unknown]
  - Drug ineffective [Not Recovered/Not Resolved]
  - Neoplasm progression [Unknown]
  - Blepharal papilloma [Unknown]
  - Headache [Unknown]
